FAERS Safety Report 20505030 (Version 1)
Quarter: 2022Q1

REPORT INFORMATION
  Report Type: Spontaneous
  Country: US (occurrence: US)
  Receive Date: 20220223
  Receipt Date: 20220223
  Transmission Date: 20220424
  Serious: Yes (Other)
  Sender: FDA-Public Use
  Company Number: US-SANOFI-00981194

PATIENT
  Sex: Female

DRUGS (2)
  1. LANTUS SOLOSTAR [Suspect]
     Active Substance: INSULIN GLARGINE
  2. ADMELOG [Concomitant]
     Active Substance: INSULIN LISPRO

REACTIONS (3)
  - Cerebrovascular accident [Unknown]
  - Amnesia [Unknown]
  - Speech disorder [Unknown]
